FAERS Safety Report 6509751-6 (Version None)
Quarter: 2009Q4

REPORT INFORMATION
  Report Type: 
  Country: None (occurrence: None)
  Receive Date: 20091222
  Receipt Date: 20091217
  Transmission Date: 20100525
  Serious: Yes (Other)
  Sender: FDA-Public Use
  Company Number: ES-BAYER-200943134GPV

PATIENT
  Age: 69 Year
  Sex: Male
  Weight: 84 kg

DRUGS (1)
  1. NEXAVAR [Suspect]
     Route: 048
     Dates: start: 20090209

REACTIONS (4)
  - ERYTHEMA [None]
  - HYPERTENSION [None]
  - JOINT STIFFNESS [None]
  - SKIN DEGENERATIVE DISORDER [None]
